FAERS Safety Report 19258596 (Version 1)
Quarter: 2021Q2

REPORT INFORMATION
  Report Type: Spontaneous
  Country: NL (occurrence: IT)
  Receive Date: 20210514
  Receipt Date: 20210514
  Transmission Date: 20210717
  Serious: Yes (Hospitalization)
  Sender: FDA-Public Use
  Company Number: IT-FRESENIUS KABI-FK202104642

PATIENT
  Age: 76 Year
  Sex: Male

DRUGS (8)
  1. BEVACIZUMAB. [Suspect]
     Active Substance: BEVACIZUMAB
     Indication: ADENOCARCINOMA OF COLON
     Route: 042
     Dates: start: 20210423, end: 20210423
  2. TOZINAMERAN. [Suspect]
     Active Substance: TOZINAMERAN
     Indication: COVID-19 IMMUNISATION
     Route: 030
     Dates: start: 20210412, end: 20210412
  3. FLUOROURACIL. [Suspect]
     Active Substance: FLUOROURACIL
     Indication: ADENOCARCINOMA OF COLON
     Dosage: FLUOROURACILE TEVA 5 G/100 ML SOLUTION FOR INFUSION
     Route: 042
     Dates: start: 20210423, end: 20210424
  4. ACETYLSALICYLIC ACID/CLOPIDOGREL BISULFATE [Concomitant]
     Active Substance: ASPIRIN\CLOPIDOGREL BISULFATE
     Indication: PRODUCT USED FOR UNKNOWN INDICATION
     Dosage: DUOPLAVIN 75 MG/100 MG FILM?COATED TABLETS
     Route: 065
  5. FLUOROURACIL. [Suspect]
     Active Substance: FLUOROURACIL
     Indication: ADENOCARCINOMA OF COLON
     Dosage: FLUOROURACILE TEVA 1 G/20 ML SOLUTION FOR INFUSION
     Route: 042
     Dates: start: 20210423, end: 20210423
  6. ATORVASTATIN CALCIUM. [Concomitant]
     Active Substance: ATORVASTATIN CALCIUM
     Indication: PRODUCT USED FOR UNKNOWN INDICATION
     Dosage: TORVAST 40 MG CHEWABLE TABLETS
     Route: 065
  7. BISOPROLOL FUMARATE. [Concomitant]
     Active Substance: BISOPROLOL FUMARATE
     Indication: PRODUCT USED FOR UNKNOWN INDICATION
     Dosage: BISOPROLOLOAHCL 2,5 MG FILM COATED TABLETS
     Route: 065
  8. IRINOTECAN 20 MG/ML CONCENTRATE FOR SOLUTION FOR INFUSION [Suspect]
     Active Substance: IRINOTECAN
     Indication: ADENOCARCINOMA OF COLON
     Dosage: IRINOTECAN KABI 20 MG/ML CONCENTRATE FOR SOLUTION FOR INFUSION?CONCENTRATE FOR SOLUTION FOR INJECTIO
     Route: 042
     Dates: start: 20210423, end: 20210423

REACTIONS (2)
  - Asthenia [Recovering/Resolving]
  - Carotid artery occlusion [Recovering/Resolving]

NARRATIVE: CASE EVENT DATE: 20210428
